FAERS Safety Report 21686562 (Version 1)
Quarter: 2022Q4

REPORT INFORMATION
  Report Type: Report from Study
  Country: FR (occurrence: FR)
  Receive Date: 20221206
  Receipt Date: 20221206
  Transmission Date: 20230112
  Serious: No
  Sender: FDA-Public Use
  Company Number: FR-GBT-016991

PATIENT
  Age: 42 Year
  Sex: Female

DRUGS (4)
  1. VOXELOTOR [Suspect]
     Active Substance: VOXELOTOR
     Indication: Sickle cell disease
     Dates: start: 20220706, end: 20220811
  2. VOXELOTOR [Suspect]
     Active Substance: VOXELOTOR
     Indication: Sickle cell disease
     Dates: start: 20220912
  3. ARANESP [Concomitant]
     Active Substance: DARBEPOETIN ALFA
     Indication: Sickle cell disease
  4. VOXELOTOR [Suspect]
     Active Substance: VOXELOTOR

REACTIONS (1)
  - Vaginal discharge [Recovered/Resolved]

NARRATIVE: CASE EVENT DATE: 20220101
